FAERS Safety Report 18599508 (Version 2)
Quarter: 2020Q4

REPORT INFORMATION
  Report Type: Report from Study
  Country: CO (occurrence: CO)
  Receive Date: 20201210
  Receipt Date: 20201214
  Transmission Date: 20210114
  Serious: Yes (Hospitalization, Other)
  Sender: FDA-Public Use
  Company Number: CO-BRISTOL-MYERS SQUIBB COMPANY-BMS-2020-095763

PATIENT
  Age: 78 Year
  Sex: Male
  Weight: 60 kg

DRUGS (1)
  1. NIVOLUMAB [Suspect]
     Active Substance: NIVOLUMAB
     Indication: LUNG NEOPLASM MALIGNANT
     Dosage: 185 MG, EVERY 15 DAYS
     Route: 042
     Dates: start: 20201020

REACTIONS (6)
  - Fatigue [Recovering/Resolving]
  - Oxygen saturation decreased [Recovering/Resolving]
  - Depression [Unknown]
  - Hyponatraemia [Recovering/Resolving]
  - Prescribed overdose [Recovered/Resolved]
  - Off label use [Unknown]

NARRATIVE: CASE EVENT DATE: 20201110
